FAERS Safety Report 5748390-1 (Version None)
Quarter: 2008Q2

REPORT INFORMATION
  Report Type: 
  Country: None (occurrence: None)
  Receive Date: 20080520
  Receipt Date: 20080505
  Transmission Date: 20081010
  Serious: Yes (Hospitalization)
  Sender: FDA-Public Use
  Company Number: 440009M08USA

PATIENT
  Age: 39 Year
  Sex: Male

DRUGS (3)
  1. SEROSTIM [Suspect]
     Indication: CACHEXIA
     Dosage: 6 MG, AS REQUIRED,
     Dates: end: 20080101
  2. TRUVADA [Suspect]
  3. VIRACEPT [Concomitant]

REACTIONS (2)
  - MYCOBACTERIUM AVIUM COMPLEX INFECTION [None]
  - RENAL FAILURE [None]
